FAERS Safety Report 4944768-4 (Version None)
Quarter: 2006Q1

REPORT INFORMATION
  Report Type: 
  Country: None (occurrence: None)
  Receive Date: 20060113
  Receipt Date: 20050309
  Transmission Date: 20060701
  Serious: Yes (Other)
  Sender: FDA-Public Use
  Company Number: HQWYE587325AUG04

PATIENT
  Age: 50 Year
  Sex: Female
  Weight: 63.56 kg

DRUGS (4)
  1. PREMPHASE 14/14 [Suspect]
     Indication: HORMONE REPLACEMENT THERAPY
     Dosage: ORAL
     Route: 048
     Dates: start: 19970101
  2. PREMPHASE 14/14 [Suspect]
     Indication: MENOPAUSAL SYMPTOMS
     Dosage: ORAL
     Route: 048
     Dates: start: 19970101
  3. PREFEST [Suspect]
     Dates: start: 20000101
  4. CELEBREX [Concomitant]

REACTIONS (2)
  - ASTHENIA [None]
  - BREAST CANCER [None]
